FAERS Safety Report 25494551 (Version 1)
Quarter: 2025Q2

REPORT INFORMATION
  Report Type: Spontaneous
  Country: GB (occurrence: GB)
  Receive Date: 20250630
  Receipt Date: 20250630
  Transmission Date: 20250716
  Serious: Yes (Death, Hospitalization, Other)
  Sender: ROCHE
  Company Number: None

PATIENT
  Age: 59 Year
  Sex: Male
  Weight: 95 kg

DRUGS (8)
  1. TOCILIZUMAB [Suspect]
     Active Substance: TOCILIZUMAB
     Indication: Rheumatoid arthritis
     Dosage: STRENGTH: 162MG/0.9ML
     Route: 065
  2. ENOXAPARIN SODIUM [Suspect]
     Active Substance: ENOXAPARIN SODIUM
     Indication: Thrombosis prophylaxis
     Route: 065
     Dates: start: 20250605, end: 20250617
  3. HEPARIN [Suspect]
     Active Substance: HEPARIN SODIUM
     Indication: Product used for unknown indication
     Route: 065
  4. AMITRIPTYLINE [Concomitant]
     Active Substance: AMITRIPTYLINE
     Route: 048
  5. ACETAMINOPHEN [Concomitant]
     Active Substance: ACETAMINOPHEN
     Route: 065
  6. FOLIC ACID [Concomitant]
     Active Substance: FOLIC ACID
     Dosage: EXCEPT METHOTREXATE DAY
  7. OXYCODONE [Concomitant]
     Active Substance: OXYCODONE
  8. METHOTREXATE [Concomitant]
     Active Substance: METHOTREXATE
     Dosage: 0MG/0.4ML SOLUTION FOR?INJECTION PRE-FILLED SYRINGES
     Route: 058

REACTIONS (8)
  - Aortic occlusion [Unknown]
  - Renal infarct [Unknown]
  - Feeling cold [Unknown]
  - Heparin-induced thrombocytopenia [Fatal]
  - Pallor [Unknown]
  - Pulmonary embolism [Unknown]
  - Haemoptysis [Unknown]
  - Back pain [Unknown]
